FAERS Safety Report 19414938 (Version 1)
Quarter: 2021Q2

REPORT INFORMATION
  Report Type: Spontaneous
  Country: US (occurrence: US)
  Receive Date: 20210614
  Receipt Date: 20210614
  Transmission Date: 20210717
  Serious: No
  Sender: FDA-Public Use
  Company Number: US-GALDERMA-US2021012171

PATIENT
  Age: 38 Year
  Sex: Male

DRUGS (10)
  1. DIFFERIN GENTLE CLEANSER (COSMETICS) [Suspect]
     Active Substance: COSMETICS
     Indication: ACNE
     Route: 061
     Dates: start: 202105
  2. DIFFERIN GEL [Suspect]
     Active Substance: ADAPALENE
     Indication: ACNE
     Dosage: 0.1%
     Route: 061
     Dates: start: 202105
  3. DIFFERIN OIL CONTROL MOISTURIZER SPF 30 [Suspect]
     Active Substance: AVOBENZONE\OCTISALATE\OCTOCRYLENE
     Indication: SCAR
  4. ZOLOFT [Concomitant]
     Active Substance: SERTRALINE HYDROCHLORIDE
     Indication: DEPRESSION
     Route: 065
  5. WELLBUTRIN [Concomitant]
     Active Substance: BUPROPION HYDROCHLORIDE
     Indication: DEPRESSION
     Route: 065
  6. DIFFERIN OIL CONTROL MOISTURIZER SPF 30 [Suspect]
     Active Substance: AVOBENZONE\OCTISALATE\OCTOCRYLENE
     Indication: ACNE
     Route: 061
     Dates: start: 202105
  7. DIFFERIN GENTLE CLEANSER (COSMETICS) [Suspect]
     Active Substance: COSMETICS
     Indication: SCAR
  8. DIFFERIN DARK SPOT CORRECTING SERUM [Suspect]
     Active Substance: HYDROQUINONE
     Indication: ACNE
     Route: 061
     Dates: start: 202105
  9. DIFFERIN DARK SPOT CORRECTING SERUM [Suspect]
     Active Substance: HYDROQUINONE
     Indication: SCAR
     Route: 061
     Dates: start: 2021, end: 20210601
  10. DIFFERIN GEL [Suspect]
     Active Substance: ADAPALENE
     Indication: SCAR

REACTIONS (7)
  - Sunburn [Recovered/Resolved]
  - Pruritus [Not Recovered/Not Resolved]
  - Product use in unapproved indication [Recovered/Resolved]
  - Drug ineffective [Not Recovered/Not Resolved]
  - Erythema [Not Recovered/Not Resolved]
  - Rash [Not Recovered/Not Resolved]
  - Acne [Not Recovered/Not Resolved]

NARRATIVE: CASE EVENT DATE: 202105
